FAERS Safety Report 7418414-4 (Version None)
Quarter: 2011Q2

REPORT INFORMATION
  Report Type: 
  Country: None (occurrence: None)
  Receive Date: 20110415
  Receipt Date: 20110411
  Transmission Date: 20111010
  Serious: Yes (Hospitalization)
  Sender: FDA-Public Use
  Company Number: ES-PFIZER INC-2011079770

PATIENT
  Age: 81 Year
  Sex: Male

DRUGS (9)
  1. PARIET [Concomitant]
     Indication: PROPHYLAXIS
     Dosage: 20 MG, UNK
     Route: 048
  2. OPTOVITE B12 [Concomitant]
     Indication: PROPHYLAXIS
     Dosage: 1 MG, UNK
     Route: 048
  3. EUTIROX [Concomitant]
     Indication: HYPOTHYROIDISM
     Dosage: 100 UG, UNK
     Route: 048
  4. LERCANIDIPINE [Concomitant]
     Indication: HYPERTENSION
     Dosage: 10 MG, UNK
     Dates: end: 20110401
  5. MICARDIS [Concomitant]
     Indication: HYPERTENSION
     Dosage: 40 MG, UNK
     Route: 048
     Dates: end: 20110401
  6. SUNITINIB MALATE [Suspect]
     Indication: RENAL CANCER
     Dosage: 37.5 MG, 1X/DAY
     Route: 048
     Dates: start: 20081220, end: 20110306
  7. DUPHALAC [Concomitant]
     Indication: CONSTIPATION
     Dosage: 10 G, UNK
     Route: 048
  8. PROFER [Concomitant]
     Indication: ANAEMIA
     Dosage: 40 MG, UNK
     Route: 048
     Dates: end: 20110401
  9. MEGESTROL ACETATE [Concomitant]
     Indication: DECREASED APPETITE
     Dosage: 160 MG, UNK
     Route: 048
     Dates: end: 20110401

REACTIONS (1)
  - PORTAL VEIN THROMBOSIS [None]
